FAERS Safety Report 5655283-7 (Version None)
Quarter: 2008Q1

REPORT INFORMATION
  Report Type: 
  Country: None (occurrence: None)
  Receive Date: 20080307
  Receipt Date: 20080306
  Transmission Date: 20080703
  Serious: Yes (Other)
  Sender: FDA-Public Use
  Company Number: B0511139A

PATIENT
  Age: 41 Year
  Sex: Male

DRUGS (2)
  1. ARRANON [Suspect]
     Dosage: 250MG PER DAY
     Route: 042
     Dates: start: 20080128, end: 20080201
  2. ARRANON [Suspect]
     Dosage: 250MG PER DAY
     Route: 042
     Dates: start: 20080218, end: 20080222

REACTIONS (1)
  - ALANINE AMINOTRANSFERASE INCREASED [None]
